FAERS Safety Report 16896695 (Version 4)
Quarter: 2020Q4

REPORT INFORMATION
  Report Type: Report from Study
  Country: US (occurrence: US)
  Receive Date: 20191008
  Receipt Date: 20201120
  Transmission Date: 20210113
  Serious: Yes (Hospitalization, Other)
  Sender: FDA-Public Use
  Company Number: US-TAKEDA-2018TUS007802

PATIENT
  Sex: Male

DRUGS (13)
  1. LEVOTHYROXINE SODIUM. [Concomitant]
     Active Substance: LEVOTHYROXINE SODIUM
     Dosage: UNK
  2. PONATINIB [Suspect]
     Active Substance: PONATINIB
     Dosage: 15 MILLIGRAM
     Route: 065
     Dates: start: 20200812, end: 20201110
  3. BAYER LOW DOSE [Concomitant]
     Active Substance: ASPIRIN
     Dosage: UNK
  4. JANUVIA [Concomitant]
     Active Substance: SITAGLIPTIN PHOSPHATE
     Dosage: UNK
  5. PANTOPRAZOLE SODIUM. [Concomitant]
     Active Substance: PANTOPRAZOLE SODIUM
     Dosage: UNK
  6. XARELTO [Concomitant]
     Active Substance: RIVAROXABAN
     Dosage: UNK
  7. PONATINIB [Suspect]
     Active Substance: PONATINIB
     Dosage: 15 MILLIGRAM, QOD
     Route: 048
  8. VITAMIN D3 [Concomitant]
     Active Substance: CHOLECALCIFEROL
     Dosage: UNK
  9. ATORVASTATIN CALCIUM. [Concomitant]
     Active Substance: ATORVASTATIN CALCIUM
     Dosage: UNK
  10. PONATINIB [Suspect]
     Active Substance: PONATINIB
     Dosage: 30 MILLIGRAM, QD
     Route: 048
  11. PONATINIB [Suspect]
     Active Substance: PONATINIB
     Dosage: 15 MILLIGRAM
     Route: 048
  12. PONATINIB [Suspect]
     Active Substance: PONATINIB
     Indication: CHRONIC MYELOID LEUKAEMIA
     Dosage: 45 MILLIGRAM, QD
     Route: 048
     Dates: start: 201802
  13. ALLOPURINOL. [Concomitant]
     Active Substance: ALLOPURINOL
     Dosage: UNK

REACTIONS (18)
  - Dyspepsia [Not Recovered/Not Resolved]
  - Headache [Unknown]
  - Off label use [Unknown]
  - Pollakiuria [Unknown]
  - Abdominal pain upper [Recovered/Resolved]
  - Insomnia [Unknown]
  - Back pain [Recovered/Resolved]
  - Visual impairment [Recovering/Resolving]
  - Hypothyroidism [Unknown]
  - Malaise [Unknown]
  - Haemorrhage [Unknown]
  - Pancreatitis [Unknown]
  - Eye pain [Unknown]
  - Dyspnoea exertional [Unknown]
  - Anaemia [Unknown]
  - Contusion [Unknown]
  - Adverse drug reaction [Unknown]
  - Product dose omission issue [Unknown]
